FAERS Safety Report 11721735 (Version 1)
Quarter: 2015Q4

REPORT INFORMATION
  Report Type: Spontaneous
  Country: US (occurrence: US)
  Receive Date: 20151111
  Receipt Date: 20151111
  Transmission Date: 20160304
  Serious: No
  Sender: FDA-Public Use
  Company Number: US-JNJFOC-20150926846

PATIENT
  Age: 82 Year
  Sex: Male
  Weight: 92.99 kg

DRUGS (2)
  1. XARELTO [Suspect]
     Active Substance: RIVAROXABAN
     Indication: PULMONARY THROMBOSIS
     Route: 048
     Dates: start: 201501
  2. TAMSULOSIN HCL [Concomitant]
     Active Substance: TAMSULOSIN
     Indication: POLLAKIURIA
     Route: 065
     Dates: start: 20150427

REACTIONS (3)
  - Fall [Recovered/Resolved]
  - Joint injury [Unknown]
  - Haemoglobin decreased [Recovered/Resolved]

NARRATIVE: CASE EVENT DATE: 2015
